FAERS Safety Report 7163797-6 (Version None)
Quarter: 2010Q4

REPORT INFORMATION
  Report Type: 
  Country: None (occurrence: None)
  Receive Date: 20101215
  Receipt Date: 20100614
  Transmission Date: 20110411
  Serious: Yes (Other)
  Sender: FDA-Public Use
  Company Number: NO-PFIZER INC-2010048756

PATIENT
  Age: 43 Year
  Sex: Female

DRUGS (3)
  1. LYRICA [Suspect]
     Indication: PAIN
     Dosage: UNK
     Dates: end: 20100510
  2. NEURONTIN [Suspect]
     Indication: NEURALGIA
     Dosage: 50 MG, 3X/DAY
     Dates: start: 20100414
  3. NEXIUM [Concomitant]
     Dosage: 40 MG, 1X/DAY
     Dates: start: 20100426, end: 20100510

REACTIONS (5)
  - HEART RATE IRREGULAR [None]
  - HYPERHIDROSIS [None]
  - LIBIDO DECREASED [None]
  - NERVOUSNESS [None]
  - PAIN [None]
